FAERS Safety Report 8029636-6 (Version None)
Quarter: 2012Q1

REPORT INFORMATION
  Report Type: 
  Country: None (occurrence: None)
  Receive Date: 20120109
  Receipt Date: 20120105
  Transmission Date: 20120608
  Serious: No
  Sender: FDA-Public Use
  Company Number: US-PFIZER INC-2011305804

PATIENT
  Sex: Female
  Weight: 61.224 kg

DRUGS (2)
  1. HYDROCORTISONE [Concomitant]
     Indication: ADRENAL INSUFFICIENCY
     Dosage: UNK
     Dates: start: 20100301
  2. CYTOMEL [Suspect]
     Indication: HYPOTHYROIDISM
     Dosage: 25 UG, 4X/DAY
     Dates: start: 20090401

REACTIONS (4)
  - ASTHENIA [None]
  - PERIPHERAL COLDNESS [None]
  - DEPRESSION [None]
  - DRUG INEFFECTIVE [None]
